FAERS Safety Report 9544131 (Version 1)
Quarter: 2013Q3

REPORT INFORMATION
  Report Type: Spontaneous
  Country: US (occurrence: US)
  Receive Date: 20130923
  Receipt Date: 20130923
  Transmission Date: 20140515
  Serious: Yes (Other)
  Sender: FDA-Public Use
  Company Number: US-B.I. PHARMACEUTICALS,INC./RIDGEFIELD-2013-BI-29382GD

PATIENT
  Sex: Male

DRUGS (4)
  1. DIPYRIDAMOLE [Suspect]
     Indication: THROMBOCYTOSIS
  2. ASPIRIN [Suspect]
     Indication: THROMBOCYTOSIS
  3. SULFINPYRAZONE [Suspect]
     Indication: THROMBOCYTOSIS
  4. HEPARIN [Suspect]
     Indication: THROMBOCYTOSIS

REACTIONS (4)
  - Pulmonary embolism [Unknown]
  - Cerebrovascular accident [Not Recovered/Not Resolved]
  - Retinal artery thrombosis [Unknown]
  - Drug ineffective [Unknown]
